FAERS Safety Report 6980707-2 (Version None)
Quarter: 2010Q3

REPORT INFORMATION
  Report Type: 
  Country: None (occurrence: None)
  Receive Date: 20100914
  Receipt Date: 20100901
  Transmission Date: 20110219
  Serious: Yes (Hospitalization)
  Sender: FDA-Public Use
  Company Number: JP-ABBOTT-10P-087-0660945-00

PATIENT
  Age: 68 Year
  Sex: Male
  Weight: 67 kg

DRUGS (1)
  1. LEUPROLIDE ACETATE [Suspect]
     Indication: PROSTATE CANCER STAGE III
     Route: 058
     Dates: start: 20080809, end: 20091107

REACTIONS (1)
  - BILE DUCT CANCER [None]
